FAERS Safety Report 10058117 (Version 1)
Quarter: 2014Q2

REPORT INFORMATION
  Report Type: Spontaneous
  Country: US (occurrence: None)
  Receive Date: 20140403
  Receipt Date: 20140403
  Transmission Date: 20141212
  Serious: Yes (Hospitalization)
  Sender: FDA-Public Use
  Company Number: None

PATIENT
  Sex: 0

DRUGS (23)
  1. CARVEDILOL [Concomitant]
  2. CLOTRIMAZOLE [Concomitant]
  3. COLLAGENASE [Concomitant]
  4. FUROSEMIDE [Concomitant]
  5. SODIUM CHLORIDE [Concomitant]
  6. MAGNESIUM SULFATE [Concomitant]
  7. K-PHOS [Concomitant]
  8. MAGNESIUM SULFATE [Suspect]
     Indication: BLOOD MAGNESIUM DECREASED
     Route: 042
     Dates: start: 20140104, end: 20140104
  9. GABAPENTIN [Concomitant]
  10. COMBIVENT RESPIMAT [Concomitant]
  11. LEVOTHYROXINE [Concomitant]
  12. ASPART [Concomitant]
  13. INSULIN ASPART [Concomitant]
  14. PROCHLOREPERAZINE [Concomitant]
  15. BENZOCAINE [Concomitant]
  16. LOSARTAN [Concomitant]
  17. CITALOPRAM [Concomitant]
  18. ASPIRIN [Concomitant]
  19. MAGNESIUM OXIDE [Concomitant]
  20. BACITRACIN/POLYMYXIN B [Concomitant]
  21. DOCUSATE [Concomitant]
  22. AMIODARONE [Concomitant]
  23. CALCIUM CARBONATE [Concomitant]

REACTIONS (1)
  - Blood magnesium increased [None]
